FAERS Safety Report 4786565-9 (Version None)
Quarter: 2005Q3

REPORT INFORMATION
  Report Type: 
  Country: None (occurrence: None)
  Receive Date: 20050927
  Receipt Date: 20050606
  Transmission Date: 20060218
  Serious: No
  Sender: FDA-Public Use
  Company Number: USA050699853

PATIENT
  Age: 37 Year
  Sex: Female

DRUGS (10)
  1. STRATTERA [Suspect]
     Indication: ATTENTION DEFICIT/HYPERACTIVITY DISORDER
     Dosage: 120 MG DAY
     Dates: start: 20050429
  2. PRILOSEC [Concomitant]
  3. COUMADIN [Concomitant]
  4. PROZAC [Concomitant]
  5. DOXYCYCLINE [Concomitant]
  6. DIAZEPAM [Concomitant]
  7. LAMICTAL [Concomitant]
  8. MIRAPEX [Concomitant]
  9. VYTORIN [Concomitant]
  10. VISTARIL [Concomitant]

REACTIONS (7)
  - DRY EYE [None]
  - EYE IRRITATION [None]
  - INCREASED APPETITE [None]
  - LIBIDO INCREASED [None]
  - NERVOUSNESS [None]
  - OCULAR HYPERAEMIA [None]
  - PRESCRIBED OVERDOSE [None]
